FAERS Safety Report 4843760-8 (Version None)
Quarter: 2005Q4

REPORT INFORMATION
  Report Type: 
  Country: None (occurrence: None)
  Receive Date: 20051129
  Receipt Date: 20051118
  Transmission Date: 20060501
  Serious: Yes (Other)
  Sender: FDA-Public Use
  Company Number: 200513990GDS

PATIENT
  Age: 22 Year
  Sex: Male

DRUGS (1)
  1. AVELOX [Suspect]
     Dosage: 400 MG, TOTAL DAILY, INTRAVNEOUS
     Route: 042

REACTIONS (2)
  - INJECTION SITE REACTION [None]
  - LOSS OF CONSCIOUSNESS [None]
